FAERS Safety Report 8231855-0 (Version None)
Quarter: 2012Q1

REPORT INFORMATION
  Report Type: 
  Country: None (occurrence: None)
  Receive Date: 20120323
  Receipt Date: 20120316
  Transmission Date: 20120608
  Serious: Yes (Death, Life-Threatening, Hospitalization)
  Sender: FDA-Public Use
  Company Number: GB-ROCHE-712081

PATIENT
  Sex: Female
  Weight: 59 kg

DRUGS (16)
  1. HERCEPTIN [Suspect]
     Indication: BREAST CANCER
     Dosage: LOADING DOSE, TOTAL DOSE: 472.5 MG, FORM: VIAL, LAST DOSE PRIOR TO SAE: 17 JUN 2010
     Route: 042
  2. METOCLOPRAMIDE [Concomitant]
     Indication: NAUSEA
     Dosage: FREQUENCY: PRN.
     Route: 048
     Dates: start: 20100618, end: 20100716
  3. FILGRASTIM [Concomitant]
     Dosage: INDICATION: PREVIOUS NEUTROPENIA
     Route: 058
     Dates: start: 20100713, end: 20100716
  4. MEROPENEM [Concomitant]
     Dosage: DOSE UNKNOWN
     Dates: start: 20100716, end: 20100726
  5. FLUCONAZOLE [Concomitant]
     Dosage: DOSE UNKNOWN
     Route: 048
     Dates: start: 20100716, end: 20100726
  6. HERCEPTIN [Suspect]
     Dosage: DOSE LEVEL: 6 MG/KG, LAST DOSE PRIOR TO SAE WAS 09 JULY 2010
     Route: 042
  7. CARBOPLATIN [Suspect]
     Indication: BREAST CANCER
     Dosage: DOSE LEVEL: 6 AUC, FORM: VIAL, LAST DOSE PRIOR TO SAE ON 09 JULY 2010.
     Route: 042
     Dates: start: 20100618, end: 20100718
  8. DOCETAXEL [Suspect]
     Indication: BREAST CANCER
     Dosage: DOSE LEVEL: 75 MG/M2, FORM VIAL, LAST DOSE PRIOR TO SAE: 09 JULY 2010.
     Route: 042
     Dates: start: 20100618, end: 20100718
  9. FLUCONAZOLE [Concomitant]
     Dosage: INDICATION: OVAL THRASH.
     Route: 048
     Dates: start: 20100709, end: 20100716
  10. DEXAMETHASONE [Concomitant]
     Dosage: INDICATION: 3 DAYS POST CHEMOTHERAPY.
     Route: 048
     Dates: start: 20100618, end: 20100716
  11. APREPITANT [Concomitant]
     Dosage: INDICATION: PRE-CHEMOTHERAPY FOR NAUSEA. FREQUENCY: 1 HOUR PRE-CHEMOTHERAPY.
     Route: 048
     Dates: start: 20100709, end: 20100709
  12. AVASTIN [Suspect]
     Indication: BREAST CANCER
     Dosage: DOSE LEVEL: 15 MG/KG, FORM: VIAL, LAST DOSE RECEIVED PRIOR TO SAE ON 09 JULY 2010
     Route: 042
     Dates: start: 20100618, end: 20100718
  13. VANCOMYCIN [Concomitant]
     Dosage: DOSE UNKNOWN
     Dates: start: 20100716, end: 20100718
  14. APREPITANT [Concomitant]
     Dosage: FREQUENCY: DAY 2+3 OF CHEMOTHERAPY.
     Route: 048
     Dates: start: 20100710, end: 20100711
  15. METRONIDAZOLE [Concomitant]
     Dosage: DOSE UNKNOWN
     Dates: start: 20100716, end: 20100719
  16. LOPERAMIDE [Concomitant]
     Indication: DIARRHOEA
     Dosage: DOSE: 1-2.  FREQUENCY: PRN
     Route: 048
     Dates: start: 20100715, end: 20100716

REACTIONS (10)
  - NEUTROPENIC SEPSIS [None]
  - INTESTINAL ISCHAEMIA [None]
  - DIARRHOEA [None]
  - ENDOTRACHEAL INTUBATION [None]
  - DISSEMINATED INTRAVASCULAR COAGULATION [None]
  - PLEURAL EFFUSION [None]
  - FEBRILE NEUTROPENIA [None]
  - INFECTIOUS PERITONITIS [None]
  - ABDOMINAL SEPSIS [None]
  - ABDOMINAL PAIN [None]
